FAERS Safety Report 6473687-X (Version None)
Quarter: 2009Q4

REPORT INFORMATION
  Report Type: 
  Country: None (occurrence: None)
  Receive Date: 20091204
  Receipt Date: 20081223
  Transmission Date: 20100525
  Serious: No
  Sender: FDA-Public Use
  Company Number: US-AMGEN-KDL325411

PATIENT
  Sex: Female

DRUGS (1)
  1. ENBREL [Suspect]
     Indication: ANKYLOSING SPONDYLITIS
     Route: 058
     Dates: start: 20081201

REACTIONS (5)
  - INJECTION SITE PAIN [None]
  - MALAISE [None]
  - NASAL CONGESTION [None]
  - ORAL HERPES [None]
  - RHINORRHOEA [None]
